FAERS Safety Report 16477907 (Version 2)
Quarter: 2019Q3

REPORT INFORMATION
  Report Type: Spontaneous
  Country: DE (occurrence: DE)
  Receive Date: 20190626
  Receipt Date: 20190702
  Transmission Date: 20191004
  Serious: Yes (Death)
  Sender: FDA-Public Use
  Company Number: DE-ACCORD-135118

PATIENT
  Age: 60 Year
  Sex: Female

DRUGS (6)
  1. PROTAMINE [Concomitant]
     Active Substance: PROTAMINE
  2. ASPIRIN. [Suspect]
     Active Substance: ASPIRIN
     Indication: PERIPHERAL ARTERIAL OCCLUSIVE DISEASE
  3. CLOPIDOGREL [Suspect]
     Active Substance: CLOPIDOGREL BISULFATE
     Indication: PERIPHERAL ARTERIAL OCCLUSIVE DISEASE
  4. HEPARIN [Suspect]
     Active Substance: HEPARIN SODIUM
     Indication: PERIPHERAL ARTERIAL OCCLUSIVE DISEASE
  5. AMPICILLIN/SULBACTAM [Concomitant]
     Indication: SEPSIS
     Dosage: STRENGTH: 2G/1G
     Route: 042
     Dates: start: 20150502
  6. PIRITRAMIDE/PIRITRAMIDE HYDROGENTARTRATE [Concomitant]

REACTIONS (4)
  - Cardiovascular disorder [Fatal]
  - Retroperitoneal haemorrhage [Fatal]
  - Resuscitation [Fatal]
  - Aspiration [Fatal]

NARRATIVE: CASE EVENT DATE: 20190502
